FAERS Safety Report 6097609-9 (Version None)
Quarter: 2009Q1

REPORT INFORMATION
  Report Type: 
  Country: None (occurrence: None)
  Receive Date: 20090227
  Receipt Date: 20081230
  Transmission Date: 20090719
  Serious: Yes (Hospitalization)
  Sender: FDA-Public Use
  Company Number: A0761906A

PATIENT
  Sex: Female

DRUGS (2)
  1. IMITREX [Suspect]
     Indication: MIGRAINE
     Dosage: .5MG AS REQUIRED
     Route: 058
  2. UNKNOWN MIGRAINE MEDICATION [Concomitant]

REACTIONS (1)
  - DRUG INEFFECTIVE [None]
